FAERS Safety Report 15575950 (Version 2)
Quarter: 2018Q4

REPORT INFORMATION
  Report Type: Spontaneous
  Country: FR (occurrence: FR)
  Receive Date: 20181101
  Receipt Date: 20181226
  Transmission Date: 20190205
  Serious: Yes (Hospitalization)
  Sender: FDA-Public Use
  Company Number: FR-MYLANLABS-2018M1081661

PATIENT
  Age: 63 Year
  Sex: Female

DRUGS (5)
  1. ROSUVASTATIN. [Suspect]
     Active Substance: ROSUVASTATIN
     Indication: HYPERCHOLESTEROLAEMIA
     Dosage: 5 MG, QD,(5 MG THE EVENING.)
     Route: 048
  2. LOCOID [Suspect]
     Active Substance: HYDROCORTISONE BUTYRATE
     Indication: ERYTHEMA
     Dosage: UNK,(1/2 TO 1/3 OF TUBE PER DAY.)
     Route: 003
     Dates: start: 20180522, end: 20180524
  3. AERIUS                             /01009701/ [Suspect]
     Active Substance: EBASTINE
     Indication: ERYTHEMA
     Dosage: 5 MG, QD
     Route: 048
     Dates: start: 20180522, end: 20180524
  4. IRBESARTAN. [Suspect]
     Active Substance: IRBESARTAN
     Indication: HYPERTENSION
     Dosage: 150 MG, QD,(150 MG IN THE MORNING.)
     Route: 048
  5. CLOPIDOGREL [Concomitant]
     Active Substance: CLOPIDOGREL BISULFATE
     Indication: PRODUCT USED FOR UNKNOWN INDICATION
     Dosage: UNK
     Route: 065

REACTIONS (1)
  - Rash erythematous [Recovering/Resolving]

NARRATIVE: CASE EVENT DATE: 20180522
